FAERS Safety Report 5891746-7 (Version None)
Quarter: 2008Q3

REPORT INFORMATION
  Report Type: 
  Country: None (occurrence: None)
  Receive Date: 20080922
  Receipt Date: 20080915
  Transmission Date: 20090109
  Serious: Yes (Hospitalization)
  Sender: FDA-Public Use
  Company Number: GB-ASTRAZENECA-2008GB01585

PATIENT
  Age: 54 Year
  Sex: Female

DRUGS (6)
  1. QUETIAPINE FUMARATE [Suspect]
     Indication: BIPOLAR I DISORDER
     Route: 048
     Dates: start: 20080519, end: 20080829
  2. SODIUM VALPROATE CHRONO [Concomitant]
     Indication: AFFECTIVE DISORDER
     Dosage: STARTED BEFORE FEBRUARY 2008
     Route: 048
  3. LEVOTHYROXINE SODIUM [Concomitant]
     Indication: HYPOTHYROIDISM
     Route: 048
     Dates: start: 19940101
  4. AMLODIPINE [Concomitant]
     Indication: ESSENTIAL HYPERTENSION
     Dosage: STARTED BEFORE FEBRUARY 2008
     Route: 048
  5. ASPIRIN [Concomitant]
  6. NAPROXEN [Concomitant]
     Indication: ARTHRITIS
     Route: 048
     Dates: start: 20080414

REACTIONS (2)
  - NEUTROPENIA [None]
  - THROMBOCYTOPENIA [None]
